FAERS Safety Report 23654261 (Version 3)
Quarter: 2024Q1

REPORT INFORMATION
  Report Type: Spontaneous
  Country: TW (occurrence: TW)
  Receive Date: 20240320
  Receipt Date: 20240324
  Transmission Date: 20240409
  Serious: Yes (Death, Hospitalization)
  Sender: FDA-Public Use
  Company Number: TW-STRIDES ARCOLAB LIMITED-2024SP003096

PATIENT
  Age: 38 Year
  Sex: Female

DRUGS (2)
  1. PREDNISOLONE [Suspect]
     Active Substance: PREDNISOLONE
     Indication: Autoimmune thyroiditis
     Dosage: 10 MILLIGRAM/DAY
     Route: 065
  2. ELASOMERAN [Suspect]
     Active Substance: ELASOMERAN
     Indication: COVID-19 immunisation
     Dosage: UNK
     Route: 065

REACTIONS (10)
  - Chronic hepatitis B [Fatal]
  - Multiple organ dysfunction syndrome [Fatal]
  - Antiphospholipid syndrome [Fatal]
  - Hepatitis [Fatal]
  - Foetal death [Fatal]
  - Vaginal haemorrhage [Unknown]
  - Lactic acidosis [Unknown]
  - Hepatic failure [Unknown]
  - Hypotension [Unknown]
  - Maternal exposure during pregnancy [Unknown]
